FAERS Safety Report 7807079-5 (Version None)
Quarter: 2011Q4

REPORT INFORMATION
  Report Type: 
  Country: None (occurrence: None)
  Receive Date: 20111011
  Receipt Date: 20110929
  Transmission Date: 20120403
  Serious: Yes (Hospitalization, Other)
  Sender: FDA-Public Use
  Company Number: AR-MEDIMMUNE-MEDI-0013344

PATIENT
  Sex: Male
  Weight: 3.4 kg

DRUGS (3)
  1. SYNAGIS [Suspect]
     Route: 030
     Dates: start: 20110818, end: 20110818
  2. SYNAGIS [Suspect]
     Route: 030
     Dates: start: 20110419, end: 20110616
  3. KAPSOVIT [Concomitant]

REACTIONS (5)
  - HYPERTHERMIA [None]
  - PNEUMONIA [None]
  - BRONCHIOLITIS [None]
  - RESPIRATORY DISTRESS [None]
  - INGUINAL HERNIA [None]
